FAERS Safety Report 19600144 (Version 1)
Quarter: 2021Q3

REPORT INFORMATION
  Report Type: Spontaneous
  Country: IN (occurrence: IN)
  Receive Date: 20210722
  Receipt Date: 20210722
  Transmission Date: 20211014
  Serious: Yes (Other)
  Sender: FDA-Public Use
  Company Number: IN-PFIZER INC-2021876261

PATIENT
  Age: 55 Year
  Sex: Male

DRUGS (2)
  1. DACOMITINIB [Suspect]
     Active Substance: DACOMITINIB
     Dosage: 45 MG, 1X/DAY
     Route: 048
     Dates: start: 20210609
  2. DACOMITINIB [Suspect]
     Active Substance: DACOMITINIB
     Dosage: 30 MG, 1X/DAY
     Route: 048
     Dates: start: 20210709

REACTIONS (3)
  - Rash [Unknown]
  - Diarrhoea [Unknown]
  - Mouth ulceration [Unknown]
